FAERS Safety Report 5396423-7 (Version None)
Quarter: 2007Q3

REPORT INFORMATION
  Report Type: 
  Country: None (occurrence: None)
  Receive Date: 20070725
  Receipt Date: 20070719
  Transmission Date: 20080115
  Serious: Yes (Other)
  Sender: FDA-Public Use
  Company Number: GB-AVENTIS-200715566GDDC

PATIENT
  Sex: Female

DRUGS (5)
  1. APIDRA [Suspect]
     Route: 058
     Dates: start: 20070307, end: 20070401
  2. INSULIN PUMP [Suspect]
  3. LEVOTHYROXINE SODIUM [Concomitant]
     Indication: HYPOTHYROIDISM
  4. SIMVASTATIN [Concomitant]
  5. ADCAR                              /00056901/ [Concomitant]
     Indication: OSTEOPOROSIS

REACTIONS (4)
  - LIP SWELLING [None]
  - OEDEMA MOUTH [None]
  - PAIN [None]
  - STEVENS-JOHNSON SYNDROME [None]
